FAERS Safety Report 5238692-X (Version None)
Quarter: 2007Q1

REPORT INFORMATION
  Report Type: 
  Country: None (occurrence: None)
  Receive Date: 20070215
  Receipt Date: 20070209
  Transmission Date: 20070707
  Serious: Yes (Other)
  Sender: FDA-Public Use
  Company Number: US-PFIZER INC-2007011522

PATIENT
  Sex: Female
  Weight: 90.7 kg

DRUGS (7)
  1. XANAX [Suspect]
  2. CHANTIX [Suspect]
     Indication: SMOKING CESSATION THERAPY
     Dosage: TEXT:UNKNOWN
  3. NEURONTIN [Concomitant]
  4. CYMBALTA [Concomitant]
  5. VALSARTAN [Concomitant]
  6. ALLEGRA [Concomitant]
  7. HYDROCODONE [Concomitant]

REACTIONS (1)
  - DRUG DEPENDENCE [None]
